FAERS Safety Report 17563651 (Version 2)
Quarter: 2020Q1

REPORT INFORMATION
  Report Type: Spontaneous
  Country: CH (occurrence: CH)
  Receive Date: 20200319
  Receipt Date: 20200320
  Transmission Date: 20200409
  Serious: Yes (Hospitalization, Other)
  Sender: FDA-Public Use
  Company Number: CH-009507513-2003CHE003311

PATIENT
  Age: 65 Year
  Sex: Male
  Weight: 90 kg

DRUGS (21)
  1. MEDROL [Suspect]
     Active Substance: METHYLPREDNISOLONE
     Dosage: 18DEC2019-02JAN2020. INITIALLY 125 MG METHYLPREDNISOLONE, 32 MG METHYLPREDNISOLONE (MEDROL) AT ADMIS
     Route: 048
     Dates: start: 20191218, end: 20200102
  2. AMBISOME [Suspect]
     Active Substance: AMPHOTERICIN B
     Dosage: 5 MILLIGRAM/KILOGRAM, QD
     Route: 041
     Dates: start: 20200127, end: 20200131
  3. KONAKION [Concomitant]
     Active Substance: PHYTONADIONE
     Dosage: 10 MILLIGRAM, QD
     Dates: start: 20191230
  4. REDORMIN (HOPS (+) VALERIAN) [Concomitant]
     Active Substance: HERBALS\HOPS\VALERIAN
     Dosage: AS NECESSARY
  5. TIENAM [Suspect]
     Active Substance: CILASTATIN SODIUM\IMIPENEM
     Dosage: 500 MILLIGRAM, Q6H
     Dates: start: 20200108, end: 20200131
  6. VORICONAZOLE. [Suspect]
     Active Substance: VORICONAZOLE
     Dosage: THEN SWITCHED TO ORAL FORMULATION OF VORICONAZOLE ORAL (PO) 2 X 250 MG/DAY, STARTING WITH THE EVENIN
     Route: 048
     Dates: start: 20200201, end: 20200204
  7. BECOZYME C FORTE [Concomitant]
     Active Substance: ASCORBIC ACID\BIOTIN\CALCIUM PANTOTHENATE\CYANOCOBALAMIN\FOLIC ACID\NIACINAMIDE\PYRIDOXINE HYDROCHLORIDE\RIBOFLAVIN\THIAMINE HYDROCHLORIDE
     Dosage: 1 DOSAGE FORM, QD
  8. ESOMEP [Concomitant]
     Active Substance: ESOMEPRAZOLE
     Dosage: UNK
     Dates: start: 20200120, end: 20200131
  9. VORICONAZOLE. [Suspect]
     Active Substance: VORICONAZOLE
     Dosage: FROM 05-FEB-2020 2 X 200 MG/DAY. STOPPED ON 11-FEB-2020 AFTER MORNING DOSE
     Route: 048
     Dates: start: 20200205, end: 20200211
  10. ALDACTONE [Concomitant]
     Active Substance: SPIRONOLACTONE
     Dosage: 50 MILLIGRAM, QD
     Dates: start: 20200118, end: 20200131
  11. DUPHALAC [Concomitant]
     Active Substance: LACTULOSE
     Dosage: 30 MILLILITER, Q12H
  12. BENERVA [Concomitant]
     Active Substance: THIAMINE HYDROCHLORIDE
     Dosage: 1 DOSAGE FORM, QD
  13. HEPARIN SODIUM. [Concomitant]
     Active Substance: HEPARIN SODIUM
     Dosage: SINCE 15-JAN-2020, STOPPED ON 24-JAN-2020 (INCIDENTAL EVENT, INDICATION UNTIL DISCONTINUATION WAS TH
     Route: 041
     Dates: start: 20200115, end: 20200124
  14. VORICONAZOLE. [Suspect]
     Active Substance: VORICONAZOLE
     Dosage: 180 MG IV ON 29-JAN-2020 (9:00 P.M.), 2 X 180 MG/DAY IV ON 30JAN2020, 180 MG IV ON 31JAN2020 (9:00 A
     Route: 041
     Dates: start: 20200129, end: 20200131
  15. ALDACTONE [Concomitant]
     Active Substance: SPIRONOLACTONE
     Dosage: 100 MILLIGRAM
     Dates: end: 20200117
  16. TEMESTA EXPIDET [Concomitant]
     Active Substance: LORAZEPAM
     Dosage: AS NECESSARY
  17. VORICONAZOLE. [Suspect]
     Active Substance: VORICONAZOLE
     Dosage: 250 MG INTRAVENOUS (IV) ON 28 AND 29-JAN-2020 (9:00 A.M.)
     Route: 041
     Dates: start: 20200128, end: 20200129
  18. XIFAXAN [Concomitant]
     Active Substance: RIFAXIMIN
     Dosage: 550 MILLIGRAM, Q12H
  19. KEPPRA [Concomitant]
     Active Substance: LEVETIRACETAM
     Dosage: 750 MILLIGRAM, Q12H
     Dates: start: 20200112
  20. FRAGMIN [Concomitant]
     Active Substance: DALTEPARIN SODIUM
     Dosage: 2500 INTERNATIONAL UNIT, QD
     Dates: start: 20200129
  21. CARVEDILOL. [Concomitant]
     Active Substance: CARVEDILOL
     Dosage: 3.125 MILLIGRAM, QD
     Dates: start: 20200116

REACTIONS (5)
  - Acute kidney injury [Recovering/Resolving]
  - Cerebral aspergillosis [Recovering/Resolving]
  - Hypopituitarism [Not Recovered/Not Resolved]
  - Bronchopulmonary aspergillosis [Recovering/Resolving]
  - Prescribed overdose [Recovering/Resolving]

NARRATIVE: CASE EVENT DATE: 20200106
